FAERS Safety Report 6221976-6 (Version None)
Quarter: 2009Q2

REPORT INFORMATION
  Report Type: 
  Country: None (occurrence: None)
  Receive Date: 20090608
  Receipt Date: 20090608
  Transmission Date: 20091009
  Serious: No
  Sender: FDA-Public Use
  Company Number: None

PATIENT
  Age: 33 Year
  Sex: Male
  Weight: 109 kg

DRUGS (2)
  1. VORICONAZOLE 100 MG [Suspect]
     Indication: FUNGAL INFECTION
     Dosage: 100MG Q12H IV
     Route: 042
     Dates: start: 20081108, end: 20081113
  2. IBUPROFEN [Concomitant]

REACTIONS (2)
  - BLOOD BILIRUBIN INCREASED [None]
  - HEPATIC ENZYME INCREASED [None]
